FAERS Safety Report 9734148 (Version 6)
Quarter: 2016Q2

REPORT INFORMATION
  Report Type: Spontaneous
  Country: US (occurrence: US)
  Receive Date: 20131205
  Receipt Date: 20160516
  Transmission Date: 20160815
  Serious: Yes (Hospitalization, Disabling, Other)
  Sender: FDA-Public Use
  Company Number: US-009507513-1312USA001834

PATIENT
  Sex: Female
  Weight: 64.85 kg

DRUGS (6)
  1. ALENDRONATE SODIUM. [Suspect]
     Active Substance: ALENDRONATE SODIUM
     Indication: OSTEOPOROSIS PROPHYLAXIS
     Dosage: 70 MG, QW
     Route: 048
     Dates: start: 200802, end: 2012
  2. ALENDRONATE SODIUM. [Suspect]
     Active Substance: ALENDRONATE SODIUM
     Indication: OSTEOPOROSIS
  3. FOSAMAX [Suspect]
     Active Substance: ALENDRONATE SODIUM
     Indication: OSTEOPOROSIS PROPHYLAXIS
     Dosage: 70 MG, QW
     Route: 048
     Dates: start: 200404, end: 20070815
  4. FOSAMAX [Suspect]
     Active Substance: ALENDRONATE SODIUM
     Indication: OSTEOPOROSIS
     Dosage: 70 MG, QW
     Route: 048
     Dates: start: 20120318, end: 20120920
  5. VITAMIN E [Concomitant]
     Active Substance: .ALPHA.-TOCOPHEROL
     Dosage: 400 IU, QD
     Route: 048
     Dates: start: 1999
  6. FOSAMAX PLUS D [Suspect]
     Active Substance: ALENDRONATE SODIUM\CHOLECALCIFEROL
     Indication: OSTEOPOROSIS
     Dosage: UNK, UNKNOWN
     Route: 048

REACTIONS (24)
  - Osteoporosis [Not Recovered/Not Resolved]
  - Hysterectomy [Unknown]
  - Blood calcium decreased [Unknown]
  - Cholecystectomy [Unknown]
  - Low turnover osteopathy [Not Recovered/Not Resolved]
  - Femur fracture [Not Recovered/Not Resolved]
  - Constipation [Unknown]
  - Appendicectomy [Unknown]
  - Tooth extraction [Unknown]
  - Blood glucose increased [Unknown]
  - Hip fracture [Not Recovered/Not Resolved]
  - Fall [Unknown]
  - Impaired fasting glucose [Unknown]
  - Musculoskeletal discomfort [Unknown]
  - Wrist fracture [Unknown]
  - Forearm fracture [Unknown]
  - Hyperlipidaemia [Unknown]
  - Urinary retention postoperative [Recovered/Resolved]
  - Oral surgery [Unknown]
  - Umbilical hernia repair [Unknown]
  - Tooth loss [Unknown]
  - Anaemia postoperative [Recovering/Resolving]
  - Sciatica [Unknown]
  - Vitamin D deficiency [Unknown]

NARRATIVE: CASE EVENT DATE: 200504
